FAERS Safety Report 18740534 (Version 2)
Quarter: 2024Q1

REPORT INFORMATION
  Report Type: Spontaneous
  Country: US (occurrence: US)
  Receive Date: 20210114
  Receipt Date: 20240228
  Transmission Date: 20240410
  Serious: No
  Sender: FDA-Public Use
  Company Number: US-EVOFEM BIOSCIENCES, INC.-2020US005707

PATIENT

DRUGS (2)
  1. PHEXXI [Suspect]
     Active Substance: CITRIC ACID MONOHYDRATE\LACTIC ACID, L-\POTASSIUM BITARTRATE
     Indication: Contraception
     Dosage: 5 MG, SINGLE
     Route: 067
     Dates: start: 20200926, end: 20200926
  2. TYLENOL [Concomitant]
     Active Substance: ACETAMINOPHEN
     Indication: Dysmenorrhoea
     Dosage: UNK, PRN

REACTIONS (2)
  - Paraesthesia [Recovered/Resolved]
  - Micturition urgency [Recovered/Resolved]

NARRATIVE: CASE EVENT DATE: 20200926
